FAERS Safety Report 4806111-0 (Version None)
Quarter: 2005Q4

REPORT INFORMATION
  Report Type: 
  Country: None (occurrence: None)
  Receive Date: 20051019
  Receipt Date: 20051019
  Transmission Date: 20060501
  Serious: Yes (Other)
  Sender: FDA-Public Use
  Company Number: None

PATIENT
  Sex: Female

DRUGS (2)
  1. ZOCOR [Suspect]
  2. PRAVACHOL [Suspect]

REACTIONS (1)
  - DRUG INTOLERANCE [None]
